FAERS Safety Report 12723203 (Version 1)
Quarter: 2016Q3

REPORT INFORMATION
  Report Type: Spontaneous
  Country: US (occurrence: US)
  Receive Date: 20160908
  Receipt Date: 20160908
  Transmission Date: 20161109
  Serious: No
  Sender: FDA-Public Use
  Company Number: US-TEVA-680738USA

PATIENT
  Age: 66 Year
  Sex: Female

DRUGS (15)
  1. COPAXONE [Suspect]
     Active Substance: GLATIRAMER ACETATE
     Indication: MULTIPLE SCLEROSIS
     Dosage: 20 MILLIGRAM DAILY;
     Route: 058
     Dates: start: 20080409
  2. FEXERIL [Concomitant]
  3. KLOR-CON [Concomitant]
     Active Substance: POTASSIUM CHLORIDE
  4. HOTA [Concomitant]
  5. TETRACYCLINE [Concomitant]
     Active Substance: TETRACYCLINE
  6. LISINOPRIL. [Concomitant]
     Active Substance: LISINOPRIL
  7. ZANTAC [Concomitant]
     Active Substance: RANITIDINE HYDROCHLORIDE
  8. EPIPEN [Concomitant]
     Active Substance: EPINEPHRINE
  9. KLONOPIN [Concomitant]
     Active Substance: CLONAZEPAM
  10. PREDNISONE. [Concomitant]
     Active Substance: PREDNISONE
  11. METRONIDAZOLE. [Concomitant]
     Active Substance: METRONIDAZOLE
  12. ALBUTEROL. [Concomitant]
     Active Substance: ALBUTEROL
  13. BISMATROL [Concomitant]
     Active Substance: BISMUTH SUBSALICYLATE
  14. PROTONIX [Concomitant]
     Active Substance: PANTOPRAZOLE SODIUM
  15. TRAMADOL. [Concomitant]
     Active Substance: TRAMADOL

REACTIONS (1)
  - Fall [Unknown]

NARRATIVE: CASE EVENT DATE: 201607
